FAERS Safety Report 9236658 (Version 1)
Quarter: 2013Q2

REPORT INFORMATION
  Report Type: Spontaneous
  Country: US (occurrence: US)
  Receive Date: 20130417
  Receipt Date: 20130417
  Transmission Date: 20140414
  Serious: Yes (Hospitalization)
  Sender: FDA-Public Use
  Company Number: US-GLAXOSMITHKLINE-A0725153A

PATIENT
  Age: 64 Year
  Sex: Male
  Weight: 127.3 kg

DRUGS (4)
  1. AVANDIA [Suspect]
     Indication: TYPE 2 DIABETES MELLITUS
     Dosage: 4MG TWICE PER DAY
     Route: 048
     Dates: start: 1999, end: 2006
  2. REGULAR INSULIN [Concomitant]
     Dates: start: 1993
  3. ULTRALENTE [Concomitant]
     Dates: start: 1993
  4. DIABETA [Concomitant]
     Dates: start: 1998

REACTIONS (3)
  - Myocardial infarction [Not Recovered/Not Resolved]
  - Cardiac failure congestive [Unknown]
  - Heart injury [Unknown]
